FAERS Safety Report 9749325 (Version 4)
Quarter: 2014Q1

REPORT INFORMATION
  Report Type: Report from Study
  Country: JP (occurrence: JP)
  Receive Date: 20131212
  Receipt Date: 20140227
  Transmission Date: 20141002
  Serious: Yes (Death, Other)
  Sender: FDA-Public Use
  Company Number: JP-TAKEDA-2013TUS003104

PATIENT
  Sex: 0

DRUGS (4)
  1. FEBURIC [Suspect]
     Indication: HYPERURICAEMIA
     Dosage: 40 MG, QD
     Route: 048
     Dates: start: 20120806, end: 20121119
  2. REZALTAS [Concomitant]
     Indication: HYPERTENSION
     Dosage: 1 DF, QD
     Route: 048
     Dates: start: 20120323, end: 20121119
  3. NATRIX [Concomitant]
     Indication: HYPERTENSION
     Dosage: 1 MG, QD
     Route: 048
     Dates: start: 20120404, end: 20121119
  4. ANTINEOPLASTIC AGENTS [Concomitant]
     Indication: GASTRIC CANCER

REACTIONS (1)
  - Gastric cancer [Fatal]
